FAERS Safety Report 12876818 (Version 4)
Quarter: 2016Q4

REPORT INFORMATION
  Report Type: Report from Study
  Country: US (occurrence: US)
  Receive Date: 20161024
  Receipt Date: 20161126
  Transmission Date: 20170207
  Serious: Yes (Hospitalization, Other)
  Sender: FDA-Public Use
  Company Number: US-AMGEN-USASL2016143972

PATIENT
  Age: 60 Year
  Sex: Female

DRUGS (1)
  1. REPATHA [Suspect]
     Active Substance: EVOLOCUMAB
     Indication: BLOOD CHOLESTEROL ABNORMAL
     Dosage: 140 MG, Q2MO
     Route: 065

REACTIONS (7)
  - Hospitalisation [Unknown]
  - Feeling abnormal [Unknown]
  - Urticaria [Unknown]
  - Chest pain [Unknown]
  - Off label use [Unknown]
  - Suicidal ideation [Unknown]
  - Conversion disorder [Unknown]

NARRATIVE: CASE EVENT DATE: 201610
